FAERS Safety Report 12110018 (Version 1)
Quarter: 2016Q1

REPORT INFORMATION
  Report Type: Spontaneous
  Country: US (occurrence: None)
  Receive Date: 20160223
  Receipt Date: 20160223
  Transmission Date: 20160526
  Serious: Yes (Other)
  Sender: FDA-Public Use
  Company Number: None

PATIENT
  Sex: Female
  Weight: 108.86 kg

DRUGS (2)
  1. HUMIRA [Suspect]
     Active Substance: ADALIMUMAB
     Route: 058
     Dates: start: 201509
  2. OTEZLA [Suspect]
     Active Substance: APREMILAST
     Dosage: OTEZLA 30MG 1 BID BY MOUTH
     Route: 048
     Dates: start: 201601

REACTIONS (3)
  - Nausea [None]
  - Diarrhoea [None]
  - Upper respiratory tract infection [None]
